FAERS Safety Report 8737890 (Version 3)
Quarter: 2012Q4

REPORT INFORMATION
  Report Type: 
  Country: JP (occurrence: JP)
  Receive Date: 20120823
  Receipt Date: 20121217
  Transmission Date: 20130627
  Serious: Yes (Other)
  Sender: FDA-Public Use
  Company Number: JP-009507513-1208JPN003973

PATIENT
  Age: 74 Year
  Sex: Female
  Weight: 30.39 kg

DRUGS (12)
  1. PEGINTRON [Suspect]
     Indication: CHRONIC HEPATITIS C
     Dosage: 0.8 Microgram per kilogram, UNK
     Route: 058
     Dates: start: 20120523, end: 20120627
  2. PEGINTRON [Suspect]
     Dosage: 0.5 Microgram per kilogram, qw
     Route: 058
     Dates: start: 20120704, end: 20121031
  3. REBETOL [Suspect]
     Indication: HEPATITIS C
     Dosage: 400 mg, Once
     Route: 048
     Dates: start: 20120523
  4. REBETOL [Suspect]
     Dosage: 200 mg, qd
     Route: 048
     Dates: start: 20120711, end: 20120925
  5. REBETOL [Suspect]
     Dosage: 400 mg, qd
     Dates: start: 20120926, end: 20121031
  6. TELAVIC [Suspect]
     Indication: HEPATITIS C
     Dosage: 1500 mg, Once
     Route: 048
     Dates: start: 20120523, end: 20120724
  7. TELAVIC [Suspect]
     Dosage: 1000mg, qd
     Route: 048
     Dates: start: 20120725, end: 20120815
  8. CLARITIN REDITABS [Concomitant]
     Indication: PROPHYLAXIS
     Dosage: 10 mg, qd, Dose formulation :POR
     Route: 048
  9. ETIZOLAM [Concomitant]
     Indication: INSOMNIA
     Dosage: 1 mg, Once,Dose formulation: POR
     Route: 048
  10. FEROTYM [Concomitant]
     Indication: IRON DEFICIENCY ANAEMIA
     Dosage: 100 mg, qd, formulation:POR
     Route: 048
  11. LIVALO [Concomitant]
     Indication: HYPERLIPIDAEMIA
     Dosage: 1 mg, qd, formulation:POR
     Route: 048
  12. EPADEL S [Concomitant]
     Indication: HYPERLIPIDAEMIA
     Dosage: 1800 mg, qd, formulation:POR
     Route: 048

REACTIONS (1)
  - Anaemia [Recovering/Resolving]
